FAERS Safety Report 14033010 (Version 2)
Quarter: 2017Q4

REPORT INFORMATION
  Report Type: Spontaneous
  Country: JP (occurrence: JP)
  Receive Date: 20171002
  Receipt Date: 20171101
  Transmission Date: 20180321
  Serious: Yes (Hospitalization)
  Sender: FDA-Public Use
  Company Number: PHJP2017JP025460

PATIENT
  Sex: Female

DRUGS (1)
  1. COSENTYX [Suspect]
     Active Substance: SECUKINUMAB
     Indication: PSORIATIC ARTHROPATHY
     Dosage: UNK
     Route: 058
     Dates: start: 201706

REACTIONS (5)
  - Abdominal pain lower [Unknown]
  - Drug effect incomplete [Unknown]
  - Osteitis [Recovering/Resolving]
  - Arthritis bacterial [Recovering/Resolving]
  - C-reactive protein increased [Unknown]
